FAERS Safety Report 7513489-6 (Version None)
Quarter: 2011Q2

REPORT INFORMATION
  Report Type: 
  Country: None (occurrence: None)
  Receive Date: 20110531
  Receipt Date: 20110502
  Transmission Date: 20111010
  Serious: Yes (Hospitalization, Other)
  Sender: FDA-Public Use
  Company Number: US-BAYER-201029545NA

PATIENT
  Sex: Female
  Weight: 95.238 kg

DRUGS (5)
  1. IBUPROFEN [Concomitant]
  2. YAZ [Suspect]
     Indication: PRODUCT USED FOR UNKNOWN INDICATION
  3. ASCORBIC ACID [Concomitant]
     Dosage: UNK
     Dates: start: 20080101
  4. YASMIN [Suspect]
     Indication: CONTRACEPTION
     Dosage: UNK
     Dates: start: 20060201, end: 20080501
  5. UNKNOWN MIGRAINE MEDICATIONS [Concomitant]
     Dosage: UNK
     Dates: start: 20080101

REACTIONS (2)
  - TRANSIENT ISCHAEMIC ATTACK [None]
  - CEREBROVASCULAR ACCIDENT [None]
